FAERS Safety Report 9030585 (Version 2)
Quarter: 2013Q1

REPORT INFORMATION
  Report Type: Spontaneous
  Country: US (occurrence: US)
  Receive Date: 20130123
  Receipt Date: 20130213
  Transmission Date: 20140127
  Serious: No
  Sender: FDA-Public Use
  Company Number: US-ELI_LILLY_AND_COMPANY-US201301006107

PATIENT
  Sex: Male

DRUGS (1)
  1. ADCIRCA [Suspect]
     Indication: PULMONARY HYPERTENSION
     Dosage: 40 MG, QD
     Dates: start: 20121129

REACTIONS (5)
  - Vision blurred [Unknown]
  - Abdominal discomfort [Unknown]
  - Dizziness [Unknown]
  - Rhinorrhoea [Unknown]
  - Gait disturbance [Unknown]
